FAERS Safety Report 7635248-6 (Version None)
Quarter: 2011Q3

REPORT INFORMATION
  Report Type: 
  Country: None (occurrence: None)
  Receive Date: 20110718
  Receipt Date: 20110706
  Transmission Date: 20111222
  Serious: Yes (Other)
  Sender: FDA-Public Use
  Company Number: CIP11001641

PATIENT
  Sex: Female

DRUGS (2)
  1. RISEDRONATE SODIUM [Suspect]
     Dosage: ORAL
     Route: 048
  2. ALENDRONATE SODIUM [Suspect]
     Dosage: ORAL
     Route: 048

REACTIONS (4)
  - FEMUR FRACTURE [None]
  - BONE LESION [None]
  - PATHOLOGICAL FRACTURE [None]
  - STRESS FRACTURE [None]
